FAERS Safety Report 8806780 (Version 2)
Quarter: 2014Q3

REPORT INFORMATION
  Report Type: Report from Study
  Country: US (occurrence: US)
  Receive Date: 20120925
  Receipt Date: 20140826
  Transmission Date: 20150326
  Serious: Yes (Death, Other)
  Sender: FDA-Public Use
  Company Number: US-ROCHE-1126184

PATIENT
  Sex: Male

DRUGS (4)
  1. AVASTIN [Suspect]
     Active Substance: BEVACIZUMAB
     Route: 065
     Dates: start: 20041222
  2. AVASTIN [Suspect]
     Active Substance: BEVACIZUMAB
     Route: 042
  3. CISPLATIN. [Concomitant]
     Active Substance: CISPLATIN
  4. AVASTIN [Suspect]
     Active Substance: BEVACIZUMAB
     Indication: MALIGNANT RESPIRATORY TRACT NEOPLASM
     Route: 065
     Dates: start: 20041209

REACTIONS (7)
  - Metastases to lung [Unknown]
  - Thrombocytopenia [Unknown]
  - Neuroendocrine carcinoma of the skin [Unknown]
  - Chronic lymphocytic leukaemia [Unknown]
  - Squamous cell carcinoma [Unknown]
  - Death [Fatal]
  - Off label use [Unknown]
